FAERS Safety Report 24710555 (Version 1)
Quarter: 2024Q4

REPORT INFORMATION
  Report Type: Spontaneous
  Country: GB (occurrence: GB)
  Receive Date: 20241209
  Receipt Date: 20241209
  Transmission Date: 20250114
  Serious: Yes (Other)
  Sender: DEXCEL
  Company Number: None

PATIENT
  Age: 75 Year
  Sex: Female

DRUGS (12)
  1. OMEPRAZOLE [Suspect]
     Active Substance: OMEPRAZOLE
     Indication: Prophylaxis
     Dosage: 20GM ONCE DAILY
     Dates: start: 2007, end: 202401
  2. OMEPRAZOLE [Suspect]
     Active Substance: OMEPRAZOLE
     Indication: Prophylaxis
     Dosage: AS NEEDED ; AS NECESSARY
     Dates: start: 202409
  3. ADIZEM [Concomitant]
     Active Substance: DILTIAZEM HYDROCHLORIDE
     Indication: Angina pectoris
     Dates: start: 2002, end: 2024
  4. ASPIRIN [Concomitant]
     Active Substance: ASPIRIN
     Indication: Adverse drug reaction
  5. ATORVASTATINATORVASTATIN (Specific Substance SUB7358) [Concomitant]
     Indication: Adverse drug reaction
  6. EmpagliflorizinEMPAGLIFLOZIN (Specific Substance SUB11220) [Concomitant]
     Indication: Diabetes mellitus
  7. FUROSEMIDE 20gmFUROSEMIDE (Specific Substance SUB5948) [Concomitant]
     Indication: Fluid retention
  8. GLYCERYL TRINITRATEGLYCERYL TRINITRATE (Specific Substance SUB6220) [Concomitant]
     Indication: Adverse drug reaction
  9. ISOSORBIDE MONONITRATE [Concomitant]
     Active Substance: ISOSORBIDE MONONITRATE
     Indication: Adverse drug reaction
  10. LOSARTANLOSARTAN (Specific Substance SUB7199) [Concomitant]
     Indication: Adverse drug reaction
  11. METFORMINMETFORMIN (Specific Substance SUB8487) [Concomitant]
     Indication: Adverse drug reaction
  12. POLYETHYLENE GLYCOL 3350\POTASSIUM CHLORIDE\SODIUM BICARBONATE\SODIUM [Concomitant]
     Active Substance: POLYETHYLENE GLYCOL 3350\POTASSIUM CHLORIDE\SODIUM BICARBONATE\SODIUM CHLORIDE
     Indication: Adverse drug reaction

REACTIONS (3)
  - Dyspnoea [Recovered/Resolved with Sequelae]
  - Myalgia [Unknown]
  - Diarrhoea [Unknown]

NARRATIVE: CASE EVENT DATE: 20180101
